FAERS Safety Report 9686415 (Version 1)
Quarter: 2013Q4

REPORT INFORMATION
  Report Type: Spontaneous
  Country: GB (occurrence: None)
  Receive Date: 20131108
  Receipt Date: 20131108
  Transmission Date: 20140711
  Serious: Yes (Other)
  Sender: FDA-Public Use
  Company Number: 2013HINLIT0218

PATIENT
  Sex: Male

DRUGS (1)
  1. LITHIUM (LITHIUM) [Suspect]
     Indication: BIPOLAR DISORDER

REACTIONS (2)
  - Cognitive disorder [None]
  - Parkinson^s disease [None]
